FAERS Safety Report 7488869-8 (Version None)
Quarter: 2011Q2

REPORT INFORMATION
  Report Type: 
  Country: None (occurrence: None)
  Receive Date: 20110511
  Receipt Date: 20110427
  Transmission Date: 20111010
  Serious: Yes (Hospitalization)
  Sender: FDA-Public Use
  Company Number: 2011S1000033

PATIENT
  Sex: Male

DRUGS (13)
  1. KRYSTEXXA [Suspect]
     Indication: RENAL FAILURE CHRONIC
     Dosage: 8 MG; IV
     Route: 042
     Dates: start: 20110321, end: 20110321
  2. KRYSTEXXA [Suspect]
     Indication: GOUT
     Dosage: 8 MG; IV
     Route: 042
     Dates: start: 20110321, end: 20110321
  3. KRYSTEXXA [Suspect]
     Indication: RENAL FAILURE CHRONIC
     Dosage: 8 MG; IV
     Route: 042
     Dates: start: 20110307, end: 20110307
  4. KRYSTEXXA [Suspect]
     Indication: GOUT
     Dosage: 8 MG; IV
     Route: 042
     Dates: start: 20110307, end: 20110307
  5. KRYSTEXXA [Suspect]
     Indication: RENAL FAILURE CHRONIC
     Dosage: 8 MG; IV
     Route: 042
     Dates: start: 20110404, end: 20110404
  6. KRYSTEXXA [Suspect]
     Indication: GOUT
     Dosage: 8 MG; IV
     Route: 042
     Dates: start: 20110404, end: 20110404
  7. PREDNISONE [Concomitant]
  8. ANTIHISTAMINE [Concomitant]
  9. BUMEX [Suspect]
     Indication: BLOOD PRESSURE
     Dosage: 1.5 MG; BID;
     Dates: start: 20090101, end: 20110418
  10. COLCHICINE [Suspect]
     Indication: GOUT
     Dosage: 0.6 MG,QOD
     Dates: start: 20090101, end: 20110418
  11. LOSARTAN POTASSIUM [Suspect]
     Indication: BLOOD PRESSURE
     Dosage: 25 MG;QD;
     Dates: start: 20090101, end: 20110418
  12. ANAKINRA [Concomitant]
  13. STEROID [Concomitant]

REACTIONS (3)
  - HEPATOCELLULAR INJURY [None]
  - RENAL FAILURE ACUTE [None]
  - HEPATOTOXICITY [None]
